FAERS Safety Report 10373961 (Version 12)
Quarter: 2015Q4

REPORT INFORMATION
  Report Type: Report from Study
  Country: US (occurrence: US)
  Receive Date: 20140809
  Receipt Date: 20151005
  Transmission Date: 20160304
  Serious: Yes (Hospitalization)
  Sender: FDA-Public Use
  Company Number: US-SANOFI-AVENTIS-2013SA017028

PATIENT
  Age: 53 Year
  Sex: Female

DRUGS (3)
  1. AUBAGIO [Suspect]
     Active Substance: TERIFLUNOMIDE
     Indication: MULTIPLE SCLEROSIS
     Route: 048
     Dates: start: 2015
  2. AUBAGIO [Suspect]
     Active Substance: TERIFLUNOMIDE
     Indication: MULTIPLE SCLEROSIS
     Route: 048
     Dates: end: 2015
  3. AUBAGIO [Suspect]
     Active Substance: TERIFLUNOMIDE
     Indication: MULTIPLE SCLEROSIS
     Route: 048
     Dates: start: 20130114

REACTIONS (18)
  - Pneumonia [Recovering/Resolving]
  - Pyrexia [Recovering/Resolving]
  - Inflammation [Recovering/Resolving]
  - Aspiration [Recovering/Resolving]
  - Ear infection [Recovering/Resolving]
  - Drug dose omission [Unknown]
  - Feeling abnormal [Unknown]
  - Headache [Unknown]
  - Balance disorder [Unknown]
  - Pain [Unknown]
  - Pneumonia aspiration [Recovering/Resolving]
  - Asthenia [Unknown]
  - Pollakiuria [Unknown]
  - Yellow skin [Unknown]
  - Nasopharyngitis [Not Recovered/Not Resolved]
  - Fungal infection [Recovering/Resolving]
  - Fatigue [Recovering/Resolving]
  - White blood cell count decreased [Recovered/Resolved]

NARRATIVE: CASE EVENT DATE: 20130217
